FAERS Safety Report 8965968 (Version 1)
Quarter: 2012Q4

REPORT INFORMATION
  Report Type: 
  Country: IT (occurrence: IT)
  Receive Date: 20121217
  Receipt Date: 20121217
  Transmission Date: 20130627
  Serious: Yes (Disabling)
  Sender: FDA-Public Use
  Company Number: PHHY2012IT114969

PATIENT
  Age: 81 Year
  Sex: Female

DRUGS (14)
  1. ZOMETA [Suspect]
     Indication: MULTIPLE MYELOMA
     Dosage: 4 mg, cyclic
     Route: 042
     Dates: start: 20100115, end: 20121015
  2. THALIDOMID [Concomitant]
     Dosage: 50 mg, daily
     Dates: end: 201103
  3. MELFALAN//MELPHALAN [Concomitant]
     Dosage: UNK UKN, UNK
     Dates: end: 201012
  4. PREDNISONE [Concomitant]
     Dosage: UNK UKN, UNK
     Dates: end: 201012
  5. KESSAR [Concomitant]
     Dosage: 1 DF, UNK
  6. DUROGESIC [Concomitant]
  7. LOPRESOR [Concomitant]
  8. SELEPARINA [Concomitant]
     Dosage: 5700 UI/0.6 ml injectable soulution
  9. CEBION [Concomitant]
  10. LASIX [Concomitant]
  11. LANOXIN [Concomitant]
  12. MEPRAL [Concomitant]
     Dosage: 2 DF, UNK
  13. ABTEI VITAMIN E [Concomitant]
  14. SELENIUM [Concomitant]

REACTIONS (2)
  - Osteonecrosis of jaw [Recovering/Resolving]
  - Abscess oral [Recovering/Resolving]
